FAERS Safety Report 19160052 (Version 2)
Quarter: 2021Q2

REPORT INFORMATION
  Report Type: Spontaneous
  Country: AU (occurrence: AU)
  Receive Date: 20210421
  Receipt Date: 20210421
  Transmission Date: 20210717
  Serious: Yes (Life-Threatening, Hospitalization)
  Sender: FDA-Public Use
  Company Number: AU-ASTRAZENECA-2021A319951

PATIENT
  Age: 59 Year
  Sex: Female

DRUGS (2)
  1. FORXIGA [Suspect]
     Active Substance: DAPAGLIFLOZIN
     Indication: CARDIAC FAILURE
     Route: 048
  2. TRAJENTA [Concomitant]
     Active Substance: LINAGLIPTIN

REACTIONS (3)
  - Glomerular filtration rate decreased [Unknown]
  - Syncope [Unknown]
  - Cardiogenic shock [Unknown]
